FAERS Safety Report 13327848 (Version 1)
Quarter: 2017Q1

REPORT INFORMATION
  Report Type: Spontaneous
  Country: US (occurrence: US)
  Receive Date: 20170313
  Receipt Date: 20170313
  Transmission Date: 20170428
  Serious: No
  Sender: FDA-Public Use
  Company Number: US-JNJFOC-20170122039

PATIENT
  Age: 66 Year
  Sex: Female
  Weight: 44.45 kg

DRUGS (16)
  1. VITAMIN D [Concomitant]
     Active Substance: CHOLECALCIFEROL
     Indication: ROUTINE HEALTH MAINTENANCE
     Dosage: LONG TIME
     Route: 065
  2. VITAMIN B6 [Concomitant]
     Active Substance: PYRIDOXINE HYDROCHLORIDE
     Indication: HAIR GROWTH ABNORMAL
     Route: 065
     Dates: start: 201612
  3. ZINC. [Concomitant]
     Active Substance: ZINC
     Indication: HAIR GROWTH ABNORMAL
     Route: 065
     Dates: start: 201612
  4. COENZYME Q10 [Concomitant]
     Active Substance: UBIDECARENONE
     Indication: ROUTINE HEALTH MAINTENANCE
     Route: 065
  5. BIOTIN [Concomitant]
     Active Substance: BIOTIN
     Indication: HAIR GROWTH ABNORMAL
     Route: 065
     Dates: start: 201612
  6. TRAZODONE [Concomitant]
     Active Substance: TRAZODONE HYDROCHLORIDE
     Indication: INSOMNIA
     Dosage: COUPLE OF YEARS
     Route: 065
  7. PROBIOTICS NOS [Concomitant]
     Active Substance: PROBIOTICS NOS
     Indication: MULTIPLE ALLERGIES
     Route: 065
  8. IBUPROFEN. [Concomitant]
     Active Substance: IBUPROFEN
     Indication: HEADACHE
     Route: 065
     Dates: start: 2016
  9. MELATONIN [Concomitant]
     Active Substance: MELATONIN
     Indication: INSOMNIA
     Dosage: 5-10 ABOUT A YEAR
     Route: 065
  10. PROBIOTICS NOS [Concomitant]
     Active Substance: PROBIOTICS NOS
     Indication: ROUTINE HEALTH MAINTENANCE
     Route: 065
  11. METAMUCIL [Concomitant]
     Active Substance: PLANTAGO SEED
     Indication: BLOOD CHOLESTEROL INCREASED
     Dosage: HALF TEASPOON AMOUNT
     Route: 065
     Dates: start: 201201
  12. WOMENS ROGAINE [Suspect]
     Active Substance: MINOXIDIL
     Route: 061
  13. WOMENS ROGAINE [Suspect]
     Active Substance: MINOXIDIL
     Indication: ALOPECIA
     Route: 061
     Dates: start: 20161229
  14. ADVIL [Concomitant]
     Active Substance: IBUPROFEN
     Indication: HEADACHE
     Dosage: AS NEEDED
     Route: 065
  15. VITAMINE C [Concomitant]
     Active Substance: ASCORBIC ACID
     Indication: ROUTINE HEALTH MAINTENANCE
     Route: 065
  16. COPPER [Concomitant]
     Active Substance: COPPER
     Indication: HAIR GROWTH ABNORMAL
     Route: 065
     Dates: start: 201612

REACTIONS (7)
  - Hair disorder [Not Recovered/Not Resolved]
  - Product use issue [Not Recovered/Not Resolved]
  - Off label use [Not Recovered/Not Resolved]
  - Alopecia [Not Recovered/Not Resolved]
  - Depression [Unknown]
  - Skin exfoliation [Not Recovered/Not Resolved]
  - Product quality issue [Unknown]

NARRATIVE: CASE EVENT DATE: 20161229
